FAERS Safety Report 18395942 (Version 1)
Quarter: 2020Q4

REPORT INFORMATION
  Report Type: Spontaneous
  Country: US (occurrence: US)
  Receive Date: 20201018
  Receipt Date: 20201018
  Transmission Date: 20210114
  Serious: No
  Sender: FDA-Public Use
  Company Number: US-SA-2020SA288644

PATIENT

DRUGS (3)
  1. DUPIXENT [Suspect]
     Active Substance: DUPILUMAB
     Dosage: S600 MG, 1X
     Dates: start: 202010, end: 202010
  2. FLU [Concomitant]
     Active Substance: INFLUENZA VIRUS VACCINE
  3. REPATHA [Concomitant]
     Active Substance: EVOLOCUMAB

REACTIONS (7)
  - Myalgia [Unknown]
  - Lipids increased [Unknown]
  - Off label use [Unknown]
  - Musculoskeletal pain [Unknown]
  - Weight increased [Unknown]
  - Back pain [Unknown]
  - Arthralgia [Unknown]

NARRATIVE: CASE EVENT DATE: 202010
